FAERS Safety Report 6427034-X (Version None)
Quarter: 2009Q4

REPORT INFORMATION
  Report Type: 
  Country: None (occurrence: None)
  Receive Date: 20091029
  Receipt Date: 20091026
  Transmission Date: 20100525
  Serious: Yes (Other)
  Sender: FDA-Public Use
  Company Number: A0813300A

PATIENT
  Age: 42 Year
  Sex: Female

DRUGS (4)
  1. ASPIRIN [Suspect]
     Indication: PROCEDURAL PAIN
     Dosage: SEE IMAGE
     Route: 048
     Dates: start: 20090930, end: 20091025
  2. OXYCODONE HCL [Concomitant]
  3. ENOXAPARIN SODIUM [Concomitant]
  4. VITAMIN [Concomitant]

REACTIONS (1)
  - RECTAL HAEMORRHAGE [None]
